FAERS Safety Report 8372678-1 (Version None)
Quarter: 2012Q2

REPORT INFORMATION
  Report Type: 
  Country: None (occurrence: None)
  Receive Date: 20120521
  Receipt Date: 20120518
  Transmission Date: 20120825
  Serious: Yes (Death, Other)
  Sender: FDA-Public Use
  Company Number: PHHY2012CA034976

PATIENT
  Sex: Female

DRUGS (19)
  1. SUCRALFATE [Concomitant]
     Dosage: 1 DF, QD
     Route: 048
  2. COLACE [Concomitant]
     Dosage: 2 DF, QD
     Route: 048
  3. LACTULOSE [Concomitant]
     Dosage: 15 ML, UNK
     Route: 048
  4. PLAQUENIL [Concomitant]
     Dosage: 200 MG, BID
  5. SECTRAL [Concomitant]
     Dosage: 200 MG, BID
  6. PREDNISONE [Concomitant]
     Dosage: 2 DF, QD
     Route: 048
  7. ZOLEDRONOC ACID [Suspect]
     Indication: OSTEOPOROSIS POSTMENOPAUSAL
     Dosage: 5 MG,YEARLY
     Route: 042
     Dates: start: 20110715
  8. ATIVAN [Concomitant]
     Dosage: 1 DF, QD
     Route: 048
  9. CALCIUM [Concomitant]
     Dosage: 1 DF, BID
     Route: 048
  10. AVALIDE [Concomitant]
     Dosage: 1 DF, QD
     Route: 048
  11. ATASOL [Concomitant]
     Dosage: 500 MG, QD
     Route: 048
  12. FERROUS SULFATE TAB [Concomitant]
     Dosage: 2 DF, QD
  13. ASPIRIN [Concomitant]
     Dosage: 80 MG, QD
     Route: 048
  14. LIPITOR [Concomitant]
     Dosage: 20 MG, QD
     Route: 048
  15. NASONEX [Concomitant]
     Dosage: 50 UG, UNK
  16. VITAMIN D [Concomitant]
     Dosage: 1 DF, ONCE A WEEK
     Route: 048
  17. MAXERAN [Concomitant]
     Dosage: 5 MG, TID
     Route: 048
  18. NEXIUM [Concomitant]
     Dosage: 40 MG, BID
     Route: 048
  19. SYNTHROID [Concomitant]
     Dosage: 1 DF, QD
     Route: 048

REACTIONS (6)
  - WEIGHT DECREASED [None]
  - GASTRIC ULCER [None]
  - GENERAL PHYSICAL HEALTH DETERIORATION [None]
  - SEPTIC SHOCK [None]
  - DEATH [None]
  - PNEUMOPERITONEUM [None]
